FAERS Safety Report 7931699-0 (Version None)
Quarter: 2011Q4

REPORT INFORMATION
  Report Type: 
  Country: None (occurrence: None)
  Receive Date: 20111121
  Receipt Date: 20111112
  Transmission Date: 20120403
  Serious: Yes (Hospitalization)
  Sender: FDA-Public Use
  Company Number: PHHY2011VE101046

PATIENT
  Sex: Female

DRUGS (9)
  1. FORADIL [Suspect]
     Dosage: UNK UKN, UNK
     Dates: start: 20111108
  2. VENTIDE [Concomitant]
     Indication: ASTHMA
     Dosage: SALBUTAMOL 100 MCG AND BECLOMETHASONE DIPROPIONATE 50 MCG
  3. ALBUTEROL SULFATE AUTOHALER [Concomitant]
     Indication: ASTHMA
  4. ZOLEDRONOC ACID [Suspect]
     Indication: OSTEOPOROSIS
     Dosage: 5 MG, YEARLY
     Route: 042
     Dates: start: 20100801
  5. FORADIL [Suspect]
     Indication: ASTHMA
     Dosage: 12 MG, UNK
     Dates: start: 20020101, end: 20040101
  6. BUDESONIDE [Suspect]
     Indication: ASTHMA
     Dosage: 200 MG, UNK
     Dates: start: 20020101, end: 20040101
  7. BUDESONIDE [Suspect]
     Dates: start: 20111108
  8. ZOLEDRONOC ACID [Suspect]
     Dosage: 5 MG, YEARLY
     Route: 042
     Dates: start: 20110801
  9. OXYGEN THERAPY [Concomitant]

REACTIONS (3)
  - BRONCHOPNEUMONIA [None]
  - LUNG DISORDER [None]
  - DYSPNOEA [None]
